FAERS Safety Report 15757893 (Version 1)
Quarter: 2018Q4

REPORT INFORMATION
  Report Type: Spontaneous
  Country: NL (occurrence: NL)
  Receive Date: 20181225
  Receipt Date: 20181225
  Transmission Date: 20190205
  Serious: Yes (Death, Hospitalization, Other)
  Sender: FDA-Public Use
  Company Number: NL-AUROBINDO-AUR-APL-2018-062326

PATIENT
  Age: 37 Year
  Sex: Female

DRUGS (6)
  1. RISPERIDONE. [Suspect]
     Active Substance: RISPERIDONE
     Indication: PRODUCT USED FOR UNKNOWN INDICATION
     Route: 048
  2. CLOZAPINE. [Suspect]
     Active Substance: CLOZAPINE
     Dosage: UNK
     Route: 065
  3. LEPONEX [Suspect]
     Active Substance: CLOZAPINE
     Indication: SCHIZOPHRENIA
     Dosage: 150 MILLIGRAM
     Route: 048
  4. CISPLATINE TEVA [Concomitant]
     Active Substance: CISPLATIN
     Indication: CERVIX CARCINOMA
     Dosage: 1 DOSAGE FORM (INJVLST 0.5MG/ML FLACON 20ML )
     Route: 065
  5. CLOZAPINE. [Suspect]
     Active Substance: CLOZAPINE
     Indication: SCHIZOPHRENIA
     Dosage: 150 MILLIGRAM, DAILY
     Route: 048
  6. CLOMIPRAMINE HCL [Concomitant]
     Active Substance: CLOMIPRAMINE
     Indication: PRODUCT USED FOR UNKNOWN INDICATION
     Dosage: UNK
     Route: 048

REACTIONS (13)
  - Lymphadenopathy [Unknown]
  - Weight increased [Unknown]
  - Schizophrenia [Recovered/Resolved]
  - Diabetes mellitus [Unknown]
  - Malignant neoplasm of unknown primary site [Unknown]
  - Metastatic neoplasm [Fatal]
  - Cervix carcinoma [Recovered/Resolved]
  - Obsessive-compulsive disorder [Recovered/Resolved]
  - Obesity [Unknown]
  - Pulmonary embolism [Fatal]
  - Psychotic disorder [Recovered/Resolved]
  - Death [Fatal]
  - Constipation [Unknown]
